FAERS Safety Report 19778005 (Version 1)
Quarter: 2021Q3

REPORT INFORMATION
  Report Type: Spontaneous
  Country: US (occurrence: US)
  Receive Date: 20210830
  Receipt Date: 20210830
  Transmission Date: 20211014
  Serious: No
  Sender: FDA-Public Use
  Company Number: None

PATIENT
  Sex: Female

DRUGS (1)
  1. REMODULIN [Suspect]
     Active Substance: TREPROSTINIL
     Indication: PULMONARY ARTERIAL HYPERTENSION
     Route: 048
     Dates: start: 20190724

REACTIONS (7)
  - Headache [None]
  - Diarrhoea [None]
  - Oedema peripheral [None]
  - Pain in extremity [None]
  - Pain in jaw [None]
  - Vasodilatation [None]
  - Nervous system disorder [None]
